FAERS Safety Report 17302969 (Version 1)
Quarter: 2020Q1

REPORT INFORMATION
  Report Type: Spontaneous
  Country: JP (occurrence: JP)
  Receive Date: 20200122
  Receipt Date: 20200122
  Transmission Date: 20200409
  Serious: Yes (Hospitalization)
  Sender: FDA-Public Use
  Company Number: JP-EISAI MEDICAL RESEARCH-EC-2020-068603

PATIENT
  Age: 68 Year
  Sex: Female

DRUGS (8)
  1. LENVIMA [Suspect]
     Active Substance: LENVATINIB
     Dosage: 10 MG/ 4 MG/ DAY OFF REGIMEN
     Route: 048
     Dates: start: 20190508, end: 20190604
  2. LENVIMA [Suspect]
     Active Substance: LENVATINIB
     Indication: PAPILLARY THYROID CANCER
     Route: 048
     Dates: start: 20171207, end: 201803
  3. LENVIMA [Suspect]
     Active Substance: LENVATINIB
     Dosage: 8MG; 3 DAYS ON/ 1 DAY OFF REGIMEN
     Route: 048
     Dates: start: 20190328, end: 20190507
  4. LENVIMA [Suspect]
     Active Substance: LENVATINIB
     Dosage: 10MG, 2 DAYS ON / 2 DAYS OFF REGIMEN
     Route: 048
     Dates: start: 20180802, end: 20190327
  5. AMLODIPINE [Concomitant]
     Active Substance: AMLODIPINE BESYLATE
     Indication: PRODUCT USED FOR UNKNOWN INDICATION
     Dates: start: 20171207
  6. VALSARTAN. [Concomitant]
     Active Substance: VALSARTAN
     Indication: PRODUCT USED FOR UNKNOWN INDICATION
     Dates: start: 20171207
  7. LENVIMA [Suspect]
     Active Substance: LENVATINIB
     Route: 048
     Dates: start: 201803, end: 20180801
  8. LENVIMA [Suspect]
     Active Substance: LENVATINIB
     Dosage: 10MG/10MG/4MG/DAY OFF REGIMEN
     Route: 048
     Dates: start: 20190605, end: 20191118

REACTIONS (4)
  - Traumatic haemothorax [Unknown]
  - Proteinuria [Unknown]
  - Pleural effusion [Unknown]
  - Pneumonia [Unknown]

NARRATIVE: CASE EVENT DATE: 20180111
